FAERS Safety Report 5952578-4 (Version None)
Quarter: 2008Q4

REPORT INFORMATION
  Report Type: 
  Country: None (occurrence: None)
  Receive Date: 20081113
  Receipt Date: 20081103
  Transmission Date: 20090506
  Serious: Yes (Hospitalization, Other)
  Sender: FDA-Public Use
  Company Number: US-ABBOTT-08P-163-0485383-00

PATIENT
  Sex: Female
  Weight: 104.42 kg

DRUGS (11)
  1. HUMIRA [Suspect]
     Indication: PSORIATIC ARTHROPATHY
     Route: 058
     Dates: start: 20080701, end: 20080901
  2. HUMIRA [Suspect]
     Dates: start: 20081103
  3. HYDROCORTISONE [Concomitant]
     Indication: PSORIATIC ARTHROPATHY
     Dosage: 20 MG DAILY; DECREASING DOSE
     Route: 048
  4. LORAZEPAM [Concomitant]
     Indication: DRUG USE FOR UNKNOWN INDICATION
     Route: 048
  5. METHOTREXATE [Concomitant]
     Indication: ARTHRITIS
     Route: 048
  6. PANTOPRAZOLE SODIUM [Concomitant]
     Indication: BARRETT'S OESOPHAGUS
     Route: 048
  7. VITAMIN TAB [Concomitant]
     Indication: DRUG USE FOR UNKNOWN INDICATION
     Route: 048
  8. CALCIUM CARBONATE [Concomitant]
     Indication: DRUG USE FOR UNKNOWN INDICATION
     Route: 048
  9. LISINOPRIL [Concomitant]
     Indication: HYPERTENSION
     Route: 048
  10. NAPROXEN SODIUM [Concomitant]
     Indication: ARTHRITIS
     Route: 048
  11. METOPROLOL TARTRATE [Concomitant]
     Dosage: 1/2 OF 25 MG TAB, TWICE DAILY

REACTIONS (10)
  - ADRENAL INSUFFICIENCY [None]
  - BLOOD IRON DECREASED [None]
  - BLOOD SODIUM DECREASED [None]
  - CYSTITIS [None]
  - HEADACHE [None]
  - HEART RATE INCREASED [None]
  - HEART RATE IRREGULAR [None]
  - NODULE [None]
  - SALIVARY GLAND NEOPLASM [None]
  - VOMITING [None]
